FAERS Safety Report 5605843-4 (Version None)
Quarter: 2008Q1

REPORT INFORMATION
  Report Type: 
  Country: None (occurrence: None)
  Receive Date: 20080129
  Receipt Date: 20080118
  Transmission Date: 20080703
  Serious: Yes (Hospitalization)
  Sender: FDA-Public Use
  Company Number: PHHO2006DE16123

PATIENT
  Age: 55 Year
  Sex: Female
  Weight: 77 kg

DRUGS (6)
  1. ZOLEDRONIC ACID [Suspect]
     Indication: METASTASES TO BONE
     Dosage: 4 MG, EVERY 4 WEEKS
     Route: 042
     Dates: start: 20040407
  2. VITAMIN D [Concomitant]
  3. CALCIUM GLUCONATE [Concomitant]
  4. TAMOXIFEN [Concomitant]
     Dosage: UNK, UNK
     Dates: start: 20040401, end: 20050601
  5. FEMARA [Concomitant]
     Dates: start: 20050701
  6. ENANTONE [Concomitant]
     Dates: start: 20040401

REACTIONS (19)
  - ANOREXIA [None]
  - ARTHROPATHY [None]
  - BONE FISTULA [None]
  - GINGIVAL INFECTION [None]
  - INFLAMMATION [None]
  - LYMPH NODE PAIN [None]
  - LYMPHADENOPATHY [None]
  - MYOPATHY [None]
  - OEDEMA MOUTH [None]
  - ORAL PAIN [None]
  - OSTEOMYELITIS [None]
  - OSTEONECROSIS [None]
  - OSTEOTOMY [None]
  - PAIN IN JAW [None]
  - PURULENT DISCHARGE [None]
  - SEQUESTRECTOMY [None]
  - STOMATITIS [None]
  - TOOTH EXTRACTION [None]
  - TOOTH FRACTURE [None]
